FAERS Safety Report 20699677 (Version 1)
Quarter: 2022Q2

REPORT INFORMATION
  Report Type: Spontaneous
  Country: US (occurrence: US)
  Receive Date: 20220412
  Receipt Date: 20220412
  Transmission Date: 20220721
  Serious: Yes (Other)
  Sender: FDA-Public Use
  Company Number: US-PFIZER INC-2021890159

PATIENT
  Age: 50 Year
  Sex: Female

DRUGS (4)
  1. DOXORUBICIN HYDROCHLORIDE [Suspect]
     Active Substance: DOXORUBICIN HYDROCHLORIDE
     Indication: Acute myeloid leukaemia
     Dosage: 60 MG, CYCLIC; (ON DAYS 1, 2, AND 3)
     Route: 042
  2. CYTARABINE [Suspect]
     Active Substance: CYTARABINE
     Indication: Acute myeloid leukaemia
     Dosage: 100 MG(ON DAYS 1, 2, 3, 8, 9, AND 10)
     Route: 037
  3. CYTARABINE [Suspect]
     Active Substance: CYTARABINE
     Dosage: 900 MG, CYCLIC (ON DAYS 1, 2, 3, 8, 9, AND 10)
     Route: 042
  4. VINCRISTINE SULFATE [Suspect]
     Active Substance: VINCRISTINE SULFATE
     Indication: Acute myeloid leukaemia
     Dosage: 2 MG, CYCLIC; (ON DAY 1)
     Route: 042

REACTIONS (2)
  - Toxic epidermal necrolysis [Unknown]
  - Palmar-plantar erythrodysaesthesia syndrome [Unknown]
